FAERS Safety Report 11933942 (Version 4)
Quarter: 2016Q2

REPORT INFORMATION
  Report Type: Report from Study
  Country: US (occurrence: US)
  Receive Date: 20160121
  Receipt Date: 20160526
  Transmission Date: 20160815
  Serious: Yes (Life-Threatening, Hospitalization)
  Sender: FDA-Public Use
  Company Number: US-JNJFOC-20160109112

PATIENT
  Age: 44 Year
  Sex: Female
  Weight: 47 kg

DRUGS (2)
  1. CLONAZEPAM. [Suspect]
     Active Substance: CLONAZEPAM
     Indication: PRODUCT USED FOR UNKNOWN INDICATION
     Dosage: 35-45 TABLETS
     Route: 048
     Dates: start: 201502
  2. TYLENOL PM [Suspect]
     Active Substance: ACETAMINOPHEN\DIPHENHYDRAMINE
     Indication: PRODUCT USED FOR UNKNOWN INDICATION
     Route: 048
     Dates: start: 201502

REACTIONS (9)
  - Intentional overdose [Recovered/Resolved]
  - Transaminases increased [Recovered/Resolved]
  - Suicide attempt [Recovered/Resolved]
  - Hepatic necrosis [Recovered/Resolved]
  - Confusional state [Recovered/Resolved]
  - Prothrombin time prolonged [Recovered/Resolved]
  - Lethargy [Recovered/Resolved]
  - Hypoglycaemia [Recovered/Resolved]
  - Blood bilirubin increased [Recovered/Resolved]

NARRATIVE: CASE EVENT DATE: 201502
